FAERS Safety Report 6127033-1 (Version None)
Quarter: 2009Q1

REPORT INFORMATION
  Report Type: 
  Country: None (occurrence: None)
  Receive Date: 20090320
  Receipt Date: 20090311
  Transmission Date: 20090719
  Serious: Yes (Hospitalization, Other)
  Sender: FDA-Public Use
  Company Number: US-B.I. PHARMACEUTICALS,INC./RIDGEFIELD-2009-BP-03015BP

PATIENT
  Age: 72 Year
  Sex: Male

DRUGS (9)
  1. PRAMIPEXOLE DIHYDROCHLORIDE [Suspect]
     Indication: PARKINSON'S DISEASE
     Dosage: 3MG
     Dates: start: 20000101, end: 20080314
  2. AMANTADINE HCL [Suspect]
     Indication: PARKINSON'S DISEASE
     Dosage: 200MG
     Dates: start: 20000101, end: 20080314
  3. CARBIDOPA [Concomitant]
     Indication: PARKINSON'S DISEASE
     Dates: start: 20030828
  4. LEVODOPA [Concomitant]
     Indication: PARKINSON'S DISEASE
     Dates: start: 20030828
  5. ENTACAPONE [Concomitant]
     Indication: PARKINSON'S DISEASE
     Dosage: 800MG
     Dates: start: 20030828
  6. HYDROCORTISONE 3 APPLICATIION [Concomitant]
     Indication: PRECANCEROUS SKIN LESION
     Dates: start: 20040203
  7. LISINOPRIL [Concomitant]
     Indication: HYPERTENSION
     Dosage: 20MG
     Dates: start: 20021007
  8. COQ10 [Concomitant]
     Indication: ROUTINE HEALTH MAINTENANCE
     Dosage: 150MG
  9. FUROSEMIDE [Concomitant]
     Indication: HYPERTENSION
     Dosage: 40MG
     Dates: start: 20050411

REACTIONS (3)
  - HALLUCINATION [None]
  - HALLUCINATIONS, MIXED [None]
  - HOMICIDAL IDEATION [None]
